FAERS Safety Report 25325323 (Version 2)
Quarter: 2025Q2

REPORT INFORMATION
  Report Type: Spontaneous
  Country: PL (occurrence: PL)
  Receive Date: 20250516
  Receipt Date: 20250529
  Transmission Date: 20250716
  Serious: Yes (Other)
  Sender: ALEXION PHARMACEUTICALS
  Company Number: PL-RECORDATI-2025003235

PATIENT
  Age: 61 Year

DRUGS (13)
  1. DAPAGLIFLOZIN [Suspect]
     Active Substance: DAPAGLIFLOZIN
     Indication: Atrial fibrillation
     Route: 065
  2. DAPAGLIFLOZIN [Suspect]
     Active Substance: DAPAGLIFLOZIN
     Indication: Cardiac failure
  3. METOPROLOL [Suspect]
     Active Substance: METOPROLOL
     Indication: Atrial fibrillation
     Route: 065
  4. METOPROLOL [Suspect]
     Active Substance: METOPROLOL
     Indication: Cardiac failure
  5. FLECAINIDE [Suspect]
     Active Substance: FLECAINIDE
     Indication: Atrial fibrillation
     Route: 065
  6. FLECAINIDE [Suspect]
     Active Substance: FLECAINIDE
     Indication: Cardiac failure
     Route: 065
  7. RIVAROXABAN [Suspect]
     Active Substance: RIVAROXABAN
     Indication: Atrial fibrillation
     Route: 065
  8. RIVAROXABAN [Suspect]
     Active Substance: RIVAROXABAN
     Indication: Cardiac failure
     Route: 065
  9. ZOFENOPRIL [Suspect]
     Active Substance: ZOFENOPRIL
     Indication: Atrial fibrillation
     Route: 065
  10. ZOFENOPRIL [Suspect]
     Active Substance: ZOFENOPRIL
     Indication: Cardiac failure
     Route: 065
  11. IBUPROFEN [Suspect]
     Active Substance: IBUPROFEN
     Indication: Atrial fibrillation
     Route: 065
  12. IBUPROFEN [Suspect]
     Active Substance: IBUPROFEN
     Indication: Cardiac failure
     Route: 065
  13. TOLPERISONE [Concomitant]
     Active Substance: TOLPERISONE
     Indication: Sacral pain

REACTIONS (2)
  - Ventricular arrhythmia [Unknown]
  - Enzyme inhibition [Unknown]
